FAERS Safety Report 25647152 (Version 1)
Quarter: 2025Q3

REPORT INFORMATION
  Report Type: Spontaneous
  Country: EU (occurrence: EU)
  Receive Date: 20250806
  Receipt Date: 20250806
  Transmission Date: 20251021
  Serious: Yes (Other)
  Sender: ABBVIE
  Company Number: None

PATIENT
  Age: 22 Year
  Weight: 55 kg

DRUGS (2)
  1. CITALOPRAM [Suspect]
     Active Substance: CITALOPRAM
     Indication: Mood swings
     Dosage: 1 TIME PER DAY 1 PIECE
     Route: 048
  2. CITALOPRAM [Suspect]
     Active Substance: CITALOPRAM
     Indication: Mood swings
     Dosage: 1 TIME PER DAY 1 PIECE
     Route: 048

REACTIONS (1)
  - Generalised tonic-clonic seizure [Recovering/Resolving]
